FAERS Safety Report 24142366 (Version 6)
Quarter: 2025Q1

REPORT INFORMATION
  Report Type: Report from Study
  Country: MX (occurrence: MX)
  Receive Date: 20240726
  Receipt Date: 20250131
  Transmission Date: 20250408
  Serious: Yes (Life-Threatening, Other)
  Sender: NOVARTIS
  Company Number: MX-002147023-NVSC2024MX062367

PATIENT
  Age: 64 Year
  Sex: Female
  Weight: 42 kg

DRUGS (11)
  1. KISQALI [Suspect]
     Active Substance: RIBOCICLIB
     Indication: Breast cancer metastatic
     Dosage: 600 MG, QD (3 TABLETS OF 200 MG)
     Route: 048
     Dates: start: 202401
  2. KISQALI [Suspect]
     Active Substance: RIBOCICLIB
     Dosage: 600 MG, QD (3 TABLETS OF 200 MG)
     Route: 048
  3. KISQALI [Suspect]
     Active Substance: RIBOCICLIB
     Dosage: 3 DOSAGE FORM, QD (3 TABLETS OF 200 MG, QD)
     Route: 048
     Dates: end: 202404
  4. KISQALI [Suspect]
     Active Substance: RIBOCICLIB
     Dosage: 600 MG, QD (3 X 200 MG)
     Route: 048
  5. KISQALI [Suspect]
     Active Substance: RIBOCICLIB
     Dosage: 600 MG, QD (3 TABLETS OF 200 MG)
     Route: 048
     Dates: start: 20240526, end: 20240718
  6. KISQALI [Suspect]
     Active Substance: RIBOCICLIB
     Dosage: 3 DOSAGE FORM, QD (3 TABLETS OF 200 MG)
     Route: 048
     Dates: end: 202408
  7. KISQALI [Suspect]
     Active Substance: RIBOCICLIB
     Dosage: 2 DOSAGE FORM, QD (2 X 200 MG)
     Route: 048
     Dates: start: 202408
  8. KISQALI [Suspect]
     Active Substance: RIBOCICLIB
     Dosage: 2 DOSAGE FORM, QD (200 MG)
     Route: 048
     Dates: start: 20240209, end: 20250128
  9. FULVESTRANT [Concomitant]
     Active Substance: FULVESTRANT
     Indication: Breast cancer metastatic
     Dosage: 2 DOSES OF 250MG/5ML, QMO (SOLUTION FOR INJECTION)
     Route: 030
     Dates: start: 202401
  10. AMLODIPINE BESYLATE [Concomitant]
     Active Substance: AMLODIPINE BESYLATE
     Indication: Hypertension
     Dosage: 1 DOSAGE FORM, QD, TABLET, 5 MG
     Route: 048
     Dates: start: 2022
  11. HORSE CHESTNUT [Concomitant]
     Active Substance: HORSE CHESTNUT
     Indication: Varicose vein
     Route: 065

REACTIONS (51)
  - Thrombocytopenia [Recovering/Resolving]
  - Cataract [Recovered/Resolved]
  - Shock [Unknown]
  - Mental impairment [Unknown]
  - Neutropenia [Unknown]
  - Ill-defined disorder [Unknown]
  - Anxiety [Unknown]
  - Negative thoughts [Unknown]
  - Somnolence [Recovering/Resolving]
  - Rhinitis allergic [Not Recovered/Not Resolved]
  - Rhinorrhoea [Recovering/Resolving]
  - Eye allergy [Not Recovered/Not Resolved]
  - Lacrimation increased [Unknown]
  - Feeling abnormal [Unknown]
  - Insomnia [Unknown]
  - Mental disorder [Unknown]
  - Eating disorder [Unknown]
  - Vision blurred [Unknown]
  - Weight decreased [Not Recovered/Not Resolved]
  - Hypersensitivity [Recovering/Resolving]
  - Feeling of despair [Not Recovered/Not Resolved]
  - Muscle spasms [Recovered/Resolved]
  - Malaise [Unknown]
  - Pain [Recovered/Resolved]
  - Vitreous floaters [Unknown]
  - Discomfort [Not Recovered/Not Resolved]
  - Feeling guilty [Unknown]
  - Depression [Not Recovered/Not Resolved]
  - Depressed mood [Unknown]
  - Rash macular [Unknown]
  - Asthenia [Not Recovered/Not Resolved]
  - Decreased appetite [Unknown]
  - Fatigue [Not Recovered/Not Resolved]
  - Nausea [Unknown]
  - Discouragement [Unknown]
  - Helplessness [Unknown]
  - Frustration tolerance decreased [Unknown]
  - Speech disorder [Unknown]
  - Decreased immune responsiveness [Unknown]
  - Rash [Not Recovered/Not Resolved]
  - Pruritus [Recovering/Resolving]
  - Purpura [Recovering/Resolving]
  - Skin burning sensation [Recovering/Resolving]
  - Eye inflammation [Recovered/Resolved]
  - Pigmentation disorder [Unknown]
  - Stress [Not Recovered/Not Resolved]
  - Restlessness [Not Recovered/Not Resolved]
  - Muscular weakness [Not Recovered/Not Resolved]
  - Off label use [Unknown]
  - Vessel perforation [Unknown]
  - Drug ineffective [Unknown]

NARRATIVE: CASE EVENT DATE: 20240101
